FAERS Safety Report 12244575 (Version 1)
Quarter: 2016Q2

REPORT INFORMATION
  Report Type: Spontaneous
  Country: JP (occurrence: JP)
  Receive Date: 20160407
  Receipt Date: 20160407
  Transmission Date: 20160815
  Serious: Yes (Other)
  Sender: FDA-Public Use
  Company Number: JP-ROCHE-1728515

PATIENT
  Age: 4 Year
  Sex: Male
  Weight: 15 kg

DRUGS (5)
  1. MUCODYNE-DS [Concomitant]
     Active Substance: CARBOCYSTEINE
     Route: 048
     Dates: start: 20160217
  2. TAMIFLU [Suspect]
     Active Substance: OSELTAMIVIR PHOSPHATE
     Indication: INFLUENZA
     Route: 048
     Dates: start: 20160217, end: 20160217
  3. MONTELUKAST [Concomitant]
     Active Substance: MONTELUKAST SODIUM
     Indication: ASTHMA
     Route: 048
     Dates: start: 20160129
  4. ASVERIN (TIPEPIDINE HIBENZATE) [Concomitant]
     Active Substance: TIPEPIDINE HIBENZATE
     Route: 048
     Dates: start: 20160217
  5. HOKUNALIN [Concomitant]
     Active Substance: TULOBUTEROL
     Indication: INFLUENZA
     Route: 062
     Dates: start: 20160217

REACTIONS (1)
  - Seizure [Recovered/Resolved]

NARRATIVE: CASE EVENT DATE: 20160217
